FAERS Safety Report 6640375-6 (Version None)
Quarter: 2010Q1

REPORT INFORMATION
  Report Type: 
  Country: None (occurrence: None)
  Receive Date: 20100302
  Receipt Date: 20091113
  Transmission Date: 20100710
  Serious: No
  Sender: FDA-Public Use
  Company Number: 2009291628

PATIENT
  Age: 76 Year
  Sex: Female
  Weight: 66.7 kg

DRUGS (5)
  1. TOVIAZ [Suspect]
     Indication: POLLAKIURIA
     Dosage: 4 MG, 1X/DAY DAILY DOSE: 4 MG, ORAL
     Route: 048
     Dates: start: 20091026, end: 20091027
  2. NORVASC [Concomitant]
  3. CAPTOPRIL [Concomitant]
  4. CELEBREX [Concomitant]
  5. ZOCOR [Concomitant]

REACTIONS (1)
  - DYSURIA [None]
